FAERS Safety Report 6170229-3 (Version None)
Quarter: 2009Q2

REPORT INFORMATION
  Report Type: 
  Country: None (occurrence: None)
  Receive Date: 20090428
  Receipt Date: 20090422
  Transmission Date: 20091009
  Serious: Yes (Other)
  Sender: FDA-Public Use
  Company Number: PHHY2008DE13711

PATIENT
  Sex: Male
  Weight: 77 kg

DRUGS (11)
  1. RASILEZ [Suspect]
     Dosage: 150 MG/DAY
     Dates: start: 20080611
  2. RASILEZ [Suspect]
     Dosage: 300 MG/DAY
     Dates: end: 20080622
  3. DIOVAN [Concomitant]
     Dosage: 1 DF, QD
  4. NEBILET [Concomitant]
     Dosage: 1 DF, QD
  5. TORASEMIDE [Concomitant]
     Dosage: 1.5 DF/DAY
  6. ACETYLSALICYLIC ACID [Concomitant]
     Dosage: 1 DF, QD
  7. PLAVIX [Concomitant]
     Dosage: 1 DF, QD
  8. SORTIS ^GOEDECKE^ [Concomitant]
     Dosage: 1 DF, QD
  9. EZETROL [Concomitant]
     Dosage: 1 DF, QD
  10. NOVONORM [Concomitant]
     Dosage: 1 DF, TID
  11. NEXIUM [Concomitant]
     Dosage: UNK

REACTIONS (8)
  - AGITATION [None]
  - EYELID OEDEMA [None]
  - HYPERSENSITIVITY [None]
  - PERIORBITAL OEDEMA [None]
  - PRURITUS [None]
  - RASH [None]
  - RASH GENERALISED [None]
  - VISUAL IMPAIRMENT [None]
